FAERS Safety Report 11160608 (Version 1)
Quarter: 2015Q2

REPORT INFORMATION
  Report Type: Spontaneous
  Country: US (occurrence: US)
  Receive Date: 20150604
  Receipt Date: 20150604
  Transmission Date: 20150821
  Serious: No
  Sender: FDA-Public Use
  Company Number: US-SA-2014SA057606

PATIENT

DRUGS (6)
  1. LANTUS SOLOSTAR [Suspect]
     Active Substance: INSULIN GLARGINE
     Route: 065
  2. NOVOLOG [Suspect]
     Active Substance: INSULIN ASPART
     Route: 065
  3. FLEXPEN [Suspect]
     Active Substance: UNSPECIFIED INGREDIENT
  4. NOVOLOG [Suspect]
     Active Substance: INSULIN ASPART
     Route: 065
  5. SOLOSTAR [Suspect]
     Active Substance: DEVICE
  6. FLEXPEN [Suspect]
     Active Substance: UNSPECIFIED INGREDIENT

REACTIONS (1)
  - Wrong drug administered [Unknown]
